FAERS Safety Report 7350663-6 (Version None)
Quarter: 2011Q1

REPORT INFORMATION
  Report Type: 
  Country: None (occurrence: None)
  Receive Date: 20110314
  Receipt Date: 20100830
  Transmission Date: 20110831
  Serious: Yes (Hospitalization)
  Sender: FDA-Public Use
  Company Number: US-BAYER-200941152NA

PATIENT
  Sex: Female
  Weight: 109.9 kg

DRUGS (11)
  1. HYDROCODONE BITARTRATE [Concomitant]
     Route: 065
  2. YAZ [Suspect]
     Indication: CONTRACEPTION
     Route: 048
     Dates: start: 20070930, end: 20071203
  3. IMITREX [Concomitant]
     Route: 065
  4. DARVOCET [Concomitant]
  5. ESGIC [Concomitant]
  6. TOPAMAX [Concomitant]
     Route: 065
  7. TRAMADOL [Concomitant]
     Route: 065
  8. PENICILLIN [Concomitant]
     Route: 065
  9. BUTALBITAL [Concomitant]
  10. LOVENOX [Concomitant]
     Indication: FEMALE STERILISATION
     Route: 065
     Dates: start: 20080701, end: 20080701
  11. CELEBREX [Concomitant]

REACTIONS (6)
  - DEEP VEIN THROMBOSIS [None]
  - APHASIA [None]
  - VISUAL FIELD DEFECT [None]
  - VISION BLURRED [None]
  - HEADACHE [None]
  - INTRACRANIAL VENOUS SINUS THROMBOSIS [None]
